FAERS Safety Report 7751617-8 (Version None)
Quarter: 2011Q3

REPORT INFORMATION
  Report Type: 
  Country: None (occurrence: None)
  Receive Date: 20110914
  Receipt Date: 20110913
  Transmission Date: 20111222
  Serious: Yes (Hospitalization)
  Sender: FDA-Public Use
  Company Number: PHHY2011DE51245

PATIENT
  Sex: Male

DRUGS (4)
  1. EXELON [Suspect]
     Indication: MEMORY IMPAIRMENT
     Dosage: 4.6 MG/ 24 HOUR
     Route: 062
     Dates: start: 20110501, end: 20110613
  2. TILIDIN [Concomitant]
     Indication: RESTLESS LEGS SYNDROME
     Dosage: UNK UKN, UNK
     Route: 048
  3. L-DOPA [Concomitant]
     Indication: RESTLESS LEGS SYNDROME
     Dosage: UNK UKN, UNK
     Route: 048
  4. PRAMIPEXOLE DIHYDROCHLORIDE [Concomitant]
     Indication: RESTLESS LEGS SYNDROME
     Dosage: UNK UKN, UNK
     Route: 048

REACTIONS (4)
  - RESTLESS LEGS SYNDROME [None]
  - CONDITION AGGRAVATED [None]
  - UPPER LIMB FRACTURE [None]
  - FALL [None]
